FAERS Safety Report 17520702 (Version 8)
Quarter: 2022Q1

REPORT INFORMATION
  Report Type: Spontaneous
  Country: US (occurrence: US)
  Receive Date: 20200310
  Receipt Date: 20220325
  Transmission Date: 20220423
  Serious: Yes (Other)
  Sender: FDA-Public Use
  Company Number: US-PFIZER INC-2020102541

PATIENT
  Age: 68 Year
  Sex: Female
  Weight: 83.46 kg

DRUGS (1)
  1. PRISTIQ EXTENDED-RELEASE [Suspect]
     Active Substance: DESVENLAFAXINE SUCCINATE
     Indication: Depression
     Dosage: 100 MG, DAILY
     Route: 048
     Dates: end: 202003

REACTIONS (7)
  - Shoulder arthroplasty [Unknown]
  - Product dose omission issue [Unknown]
  - Influenza [Unknown]
  - Irritability [Unknown]
  - Thinking abnormal [Unknown]
  - Feeling abnormal [Unknown]
  - Emotional distress [Unknown]
